FAERS Safety Report 14558591 (Version 3)
Quarter: 2021Q2

REPORT INFORMATION
  Report Type: Spontaneous
  Country: US (occurrence: US)
  Receive Date: 20180221
  Receipt Date: 20210510
  Transmission Date: 20210716
  Serious: Yes (Other)
  Sender: FDA-Public Use
  Company Number: US-BEH-2018087871

PATIENT
  Age: 42 Year
  Sex: Female

DRUGS (3)
  1. HAEGARDA [Suspect]
     Active Substance: HUMAN C1-ESTERASE INHIBITOR
     Dosage: 6000 INTERNATIONAL UNIT, BIW
     Route: 058
     Dates: start: 20210331
  2. HAEGARDA [Suspect]
     Active Substance: HUMAN C1-ESTERASE INHIBITOR
     Indication: HEREDITARY ANGIOEDEMA
     Dosage: 5300 IU, BIW (EVERY 3 TO 4 DAYS)
     Route: 058
     Dates: start: 20170921
  3. HAEGARDA [Suspect]
     Active Substance: HUMAN C1-ESTERASE INHIBITOR
     Indication: PROPHYLAXIS
     Dosage: 1 DF, TOT
     Route: 058
     Dates: start: 20180209

REACTIONS (8)
  - Pain [Unknown]
  - Drug ineffective for unapproved indication [Unknown]
  - Hereditary angioedema [Recovered/Resolved]
  - Nausea [Unknown]
  - Hereditary angioedema [Recovered/Resolved]
  - Vomiting [Unknown]
  - Hereditary angioedema [Recovered/Resolved]
  - Hereditary angioedema [Unknown]

NARRATIVE: CASE EVENT DATE: 20180209
